FAERS Safety Report 6726827-9 (Version None)
Quarter: 2010Q2

REPORT INFORMATION
  Report Type: 
  Country: None (occurrence: None)
  Receive Date: 20100516
  Receipt Date: 20100505
  Transmission Date: 20101027
  Serious: Yes (Other)
  Sender: FDA-Public Use
  Company Number: US-JNJFOC-20100504798

PATIENT
  Age: 18 Month
  Sex: Male
  Weight: 13.15 kg

DRUGS (6)
  1. CHILDREN'S MOTRIN [Suspect]
     Indication: EAR INFECTION
     Route: 048
  2. CHILDREN'S MOTRIN [Suspect]
     Indication: PYREXIA
     Route: 048
  3. CHILDREN'S TYLENOL [Suspect]
     Indication: EAR INFECTION
     Route: 048
  4. CHILDREN'S TYLENOL [Suspect]
     Indication: PYREXIA
     Route: 048
  5. ZITHROMAX [Concomitant]
  6. ANTIBIOTIC [Concomitant]

REACTIONS (4)
  - CONVULSION [None]
  - DRUG INEFFECTIVE [None]
  - PRODUCT QUALITY ISSUE [None]
  - PYREXIA [None]
